FAERS Safety Report 11613973 (Version 2)
Quarter: 2015Q4

REPORT INFORMATION
  Report Type: Spontaneous
  Country: US (occurrence: US)
  Receive Date: 20151008
  Receipt Date: 20151008
  Transmission Date: 20160304
  Serious: Yes (Death, Hospitalization, Other)
  Sender: FDA-Public Use
  Company Number: US-MEDA-2015090061

PATIENT
  Sex: Female

DRUGS (15)
  1. LYRICA [Suspect]
     Active Substance: PREGABALIN
     Indication: FIBROMYALGIA
     Dates: start: 20140507, end: 201406
  2. SOMA [Suspect]
     Active Substance: CARISOPRODOL
     Indication: PAIN
     Route: 048
     Dates: start: 201210
  3. SOMA [Suspect]
     Active Substance: CARISOPRODOL
     Indication: PAIN
     Route: 048
     Dates: start: 200801, end: 2008
  4. LYRICA [Suspect]
     Active Substance: PREGABALIN
     Indication: FIBROMYALGIA
     Dosage: (300 MG + 150 MG) THREE TIMES A DAY
     Dates: start: 201408
  5. OXYCODONE [Suspect]
     Active Substance: OXYCODONE
     Indication: PAIN
  6. OXYCODONE [Suspect]
     Active Substance: OXYCODONE
     Indication: PAIN
     Dates: start: 201501
  7. NORCO [Concomitant]
     Active Substance: ACETAMINOPHEN\HYDROCODONE BITARTRATE
  8. LYRICA [Suspect]
     Active Substance: PREGABALIN
     Indication: FIBROMYALGIA
     Dates: start: 2008, end: 201403
  9. OXYCODONE [Suspect]
     Active Substance: OXYCODONE
     Indication: PAIN
     Dates: start: 201301
  10. HYDROCODONE [Concomitant]
     Active Substance: HYDROCODONE
  11. XANAX [Concomitant]
     Active Substance: ALPRAZOLAM
     Dates: start: 201208
  12. LYRICA [Suspect]
     Active Substance: PREGABALIN
     Indication: FIBROMYALGIA
     Dates: start: 20140624, end: 2014
  13. SOMA [Suspect]
     Active Substance: CARISOPRODOL
     Indication: PAIN
     Route: 048
     Dates: start: 200805, end: 2012
  14. LYRICA [Suspect]
     Active Substance: PREGABALIN
     Indication: FIBROMYALGIA
     Dates: start: 200801, end: 2008
  15. PERCOCET [Concomitant]
     Active Substance: ACETAMINOPHEN\OXYCODONE HYDROCHLORIDE

REACTIONS (14)
  - Knee arthroplasty [Unknown]
  - Drug dependence [Unknown]
  - Gait disturbance [Unknown]
  - Cardiac arrest [Fatal]
  - Surgery [Unknown]
  - Prescribed overdose [Unknown]
  - Arthralgia [Unknown]
  - Drug interaction [Fatal]
  - Knee operation [Unknown]
  - Post procedural infection [Unknown]
  - Joint injury [Unknown]
  - Respiratory arrest [Unknown]
  - Blood pressure decreased [Unknown]
  - Fall [Unknown]

NARRATIVE: CASE EVENT DATE: 2014
